FAERS Safety Report 13598865 (Version 2)
Quarter: 2020Q3

REPORT INFORMATION
  Report Type: Report from Study
  Country: US (occurrence: US)
  Receive Date: 20170531
  Receipt Date: 20170726
  Transmission Date: 20201104
  Serious: Yes (Death, Hospitalization)
  Sender: FDA-Public Use
  Company Number: US-JNJFOC-20170508512

PATIENT
  Age: 73 Year
  Sex: Male

DRUGS (5)
  1. IBRUTINIB [Suspect]
     Active Substance: IBRUTINIB
     Indication: PANCREATIC CARCINOMA
     Route: 048
     Dates: start: 20160201, end: 20170501
  2. MYCOPHENOLATE [Concomitant]
     Active Substance: MYCOPHENOLIC ACID
     Indication: AUTOIMMUNE HEPATITIS
     Dosage: 500 MG, BID
     Route: 048
     Dates: start: 20161220, end: 20170523
  3. MEDI4736 [Suspect]
     Active Substance: DURVALUMAB
     Indication: PANCREATIC CARCINOMA
     Dosage: 10 MG/KG Q2 WEEKS
     Route: 042
     Dates: start: 20160201
  4. IBRUTINIB [Suspect]
     Active Substance: IBRUTINIB
     Route: 048
  5. PREDNISONE. [Concomitant]
     Active Substance: PREDNISONE
     Indication: AUTOIMMUNE HEPATITIS
     Dosage: 80?10 MG, QD
     Route: 048
     Dates: start: 20161125, end: 20170523

REACTIONS (4)
  - Compression fracture [Not Recovered/Not Resolved]
  - Sepsis [Fatal]
  - Dyspnoea [Not Recovered/Not Resolved]
  - Ascites [Recovered/Resolved]

NARRATIVE: CASE EVENT DATE: 20170501
